FAERS Safety Report 19427646 (Version 1)
Quarter: 2021Q2

REPORT INFORMATION
  Report Type: Other
  Country: US (occurrence: US)
  Receive Date: 20210616
  Receipt Date: 20210616
  Transmission Date: 20210717
  Serious: No
  Sender: FDA-Public Use
  Company Number: US-ROCHE-2760639

PATIENT

DRUGS (5)
  1. DOLUTEGRAVIR [Concomitant]
     Active Substance: DOLUTEGRAVIR
  2. TOCILIZUMAB. [Suspect]
     Active Substance: TOCILIZUMAB
     Indication: COVID-19
     Route: 065
  3. COLCHICINE. [Concomitant]
     Active Substance: COLCHICINE
     Dosage: COLCHICINE WOULD NOT BE CONTINUED IF THE PATIENTS WERE DISCHARGED FROM THE HOSPITAL BEFORE COMPLETIN
  4. LAMIVUDINE. [Concomitant]
     Active Substance: LAMIVUDINE
  5. COLCHICINE. [Concomitant]
     Active Substance: COLCHICINE
     Indication: COVID-19

REACTIONS (3)
  - Off label use [Unknown]
  - Intentional product use issue [Unknown]
  - No adverse event [Unknown]
